FAERS Safety Report 7991601-2 (Version None)
Quarter: 2011Q4

REPORT INFORMATION
  Report Type: 
  Country: None (occurrence: None)
  Receive Date: 20111219
  Receipt Date: 20111107
  Transmission Date: 20120403
  Serious: No
  Sender: FDA-Public Use
  Company Number: US-ALLERGAN-1114599US

PATIENT
  Age: 80 Year
  Sex: Female

DRUGS (1)
  1. LUMIGAN [Suspect]
     Indication: INTRAOCULAR PRESSURE TEST
     Dosage: UNK
     Route: 065
     Dates: start: 20110801

REACTIONS (1)
  - EYE PAIN [None]
